FAERS Safety Report 23763318 (Version 1)
Quarter: 2024Q2

REPORT INFORMATION
  Report Type: Spontaneous
  Country: US (occurrence: None)
  Receive Date: 20240419
  Receipt Date: 20240419
  Transmission Date: 20240716
  Serious: No
  Sender: FDA-Public Use
  Company Number: None

PATIENT
  Age: 76 Year

DRUGS (1)
  1. XDEMVY [Suspect]
     Active Substance: LOTILANER
     Indication: Demodex blepharitis
     Dosage: 1 DROPS -GTT BID OPHTHALMIC?
     Route: 047
     Dates: start: 20240326, end: 20240419

REACTIONS (1)
  - Eye pain [None]

NARRATIVE: CASE EVENT DATE: 20240418
